FAERS Safety Report 9990447 (Version 1)
Quarter: 2014Q1

REPORT INFORMATION
  Report Type: Report from Study
  Country: US (occurrence: US)
  Receive Date: 20140310
  Receipt Date: 20140310
  Transmission Date: 20141002
  Serious: No
  Sender: FDA-Public Use
  Company Number: US-ABBVIE-13P-163-1135518-00

PATIENT
  Sex: Female

DRUGS (10)
  1. HUMIRA [Suspect]
     Indication: PSORIASIS
     Route: 058
     Dates: start: 20130607, end: 20130816
  2. METFORMIN [Concomitant]
  3. GLIPIZIDE [Concomitant]
  4. POTASSIUM [Concomitant]
  5. VICTOZA [Concomitant]
  6. NOVLOG [Concomitant]
  7. LANTUS [Concomitant]
  8. XANAX [Concomitant]
  9. PERCOSET [Concomitant]
  10. BENADRYL [Concomitant]

REACTIONS (2)
  - Psoriasis [Unknown]
  - Infection [Unknown]
